FAERS Safety Report 24006026 (Version 1)
Quarter: 2024Q2

REPORT INFORMATION
  Report Type: Spontaneous
  Country: US (occurrence: None)
  Receive Date: 20240622
  Receipt Date: 20240622
  Transmission Date: 20240716
  Serious: Yes (Life-Threatening, Hospitalization)
  Sender: FDA-Public Use
  Company Number: None

PATIENT
  Age: 50 Year
  Sex: Male
  Weight: 133 kg

DRUGS (6)
  1. DAPTOMYCIN [Suspect]
     Active Substance: DAPTOMYCIN
     Indication: Infection
     Dosage: 800 MG EVERY DAY IV
     Route: 042
     Dates: start: 20240430, end: 20240512
  2. DAPTOMYCIN [Suspect]
     Active Substance: DAPTOMYCIN
     Indication: Lymphadenitis
  3. VANCOMYCIN [Suspect]
     Active Substance: VANCOMYCIN
  4. CEFEPIME [Suspect]
     Active Substance: CEFEPIME HYDROCHLORIDE
  5. METRONIDAZOLE [Suspect]
     Active Substance: METRONIDAZOLE
  6. DEVICE [Suspect]
     Active Substance: DEVICE

REACTIONS (6)
  - Rhabdomyolysis [None]
  - Skin graft [None]
  - Gastrointestinal disorder [None]
  - Pulmonary embolism [None]
  - Blood creatinine increased [None]
  - Nephrotic syndrome [None]

NARRATIVE: CASE EVENT DATE: 20240512
